FAERS Safety Report 5771588-3 (Version None)
Quarter: 2008Q2

REPORT INFORMATION
  Report Type: 
  Country: None (occurrence: None)
  Receive Date: 20080613
  Receipt Date: 20080604
  Transmission Date: 20081010
  Serious: Yes (Hospitalization, Other)
  Sender: FDA-Public Use
  Company Number: US-WYE-H04372908

PATIENT
  Age: 79 Year
  Sex: Female
  Weight: 66.28 kg

DRUGS (8)
  1. EFFEXOR XR [Suspect]
     Indication: DEPRESSION
     Dosage: 37.5 MG - FREQUENCY NOT SPECIFIED
     Route: 048
     Dates: start: 20080301, end: 20080101
  2. EFFEXOR XR [Interacting]
     Indication: ANXIETY
     Dosage: 75 MG - FREQUENCY NOT SPECIFIED
     Route: 048
     Dates: start: 20080101, end: 20080101
  3. EFFEXOR XR [Interacting]
     Dosage: ^WEAN OFF OF IT BY SKIPPING DAYS^
     Route: 048
     Dates: start: 20080101, end: 20080101
  4. EFFEXOR XR [Interacting]
     Dosage: 37.5 MG - FREQUENCY NOT SPECIFIED
     Route: 048
     Dates: start: 20080521, end: 20080527
  5. EFFEXOR XR [Interacting]
     Dosage: 75 MG - FREQUENCY NOT SPECIFIED
     Route: 048
     Dates: start: 20080528
  6. CLONAZEPAM [Concomitant]
     Indication: DEPRESSION
  7. LEVOTHYROXINE SODIUM [Interacting]
     Indication: HYPOTHYROIDISM
     Dosage: ^.112 MG^ - FREQUENCY NOT SPECIFIED
  8. NEURONTIN [Concomitant]
     Indication: RESTLESS LEGS SYNDROME

REACTIONS (8)
  - BLOOD PRESSURE INCREASED [None]
  - CONSTIPATION [None]
  - DEPRESSION [None]
  - DRUG INTERACTION [None]
  - HEART RATE INCREASED [None]
  - NERVOUSNESS [None]
  - RESTLESSNESS [None]
  - SOMNOLENCE [None]
